FAERS Safety Report 17770158 (Version 5)
Quarter: 2025Q3

REPORT INFORMATION
  Report Type: Spontaneous
  Country: US (occurrence: US)
  Receive Date: 20200512
  Receipt Date: 20250723
  Transmission Date: 20251020
  Serious: Yes (Other)
  Sender: PFIZER
  Company Number: US-PFIZER INC-2020185959

PATIENT
  Age: 69 Year
  Sex: Male

DRUGS (22)
  1. CIPROFLOXACIN [Interacting]
     Active Substance: CIPROFLOXACIN
     Indication: Prophylaxis urinary tract infection
  2. RASAGILINE [Interacting]
     Active Substance: RASAGILINE
     Indication: Parkinson^s disease
     Dosage: 1 MG, DAILY
  3. ALLOPURINOL [Concomitant]
     Active Substance: ALLOPURINOL
     Dosage: 100 MG, DAILY
  4. CARBIDOPA\LEVODOPA [Concomitant]
     Active Substance: CARBIDOPA\LEVODOPA
     Dosage: 25 MG, 2X/DAY
  5. CARBIDOPA\LEVODOPA [Concomitant]
     Active Substance: CARBIDOPA\LEVODOPA
     Dosage: 100 MG, 2X/DAY
  6. CARVEDILOL [Concomitant]
     Active Substance: CARVEDILOL
     Dosage: 6.25 MG, 2X/DAY
  7. FUROSEMIDE [Concomitant]
     Active Substance: FUROSEMIDE
     Dosage: 80 MG, 2X/DAY
  8. INSULIN GLARGINE [Concomitant]
     Active Substance: INSULIN GLARGINE
     Dosage: 10 UNITS NIGHTLY
  9. MAGNESIUM OXIDE [Concomitant]
     Active Substance: MAGNESIUM OXIDE
     Dosage: 400 MG, DAILY
  10. MEGESTROL [Concomitant]
     Active Substance: MEGESTROL
     Dosage: 40 MG, 3X/DAY (TID)
  11. PANTOPRAZOLE [Concomitant]
     Active Substance: PANTOPRAZOLE
     Dosage: 40 MG, DAILY
  12. PREDNISONE [Concomitant]
     Active Substance: PREDNISONE
     Dosage: 5 MG, DAILY
  13. SERTRALINE [Concomitant]
     Active Substance: SERTRALINE HYDROCHLORIDE
     Dosage: 50 MG, DAILY
  14. SPIRONOLACTONE [Concomitant]
     Active Substance: SPIRONOLACTONE
     Dosage: 25 MG, DAILY
  15. TACROLIMUS [Concomitant]
     Active Substance: TACROLIMUS
     Dosage: 2 MG, 2X/DAY
  16. TAMSULOSIN [Concomitant]
     Active Substance: TAMSULOSIN
     Dosage: 0.4 MG, DAILY (NIGHTLY)
  17. CEFEPIME [Concomitant]
     Active Substance: CEFEPIME HYDROCHLORIDE
     Indication: Pyelonephritis
  18. CEFEPIME [Concomitant]
     Active Substance: CEFEPIME HYDROCHLORIDE
     Indication: Acute kidney injury
  19. VANCOMYCIN [Concomitant]
     Active Substance: VANCOMYCIN
     Indication: Pyelonephritis
  20. VANCOMYCIN [Concomitant]
     Active Substance: VANCOMYCIN
     Indication: Acute kidney injury
  21. ERTAPENEM [Concomitant]
     Active Substance: ERTAPENEM
     Indication: Pathogen resistance
  22. ERTAPENEM [Concomitant]
     Active Substance: ERTAPENEM
     Indication: Klebsiella infection

REACTIONS (6)
  - Drug interaction [Recovering/Resolving]
  - Dystonia [Recovering/Resolving]
  - Tremor [Recovering/Resolving]
  - Cogwheel rigidity [Recovering/Resolving]
  - Off label use [Unknown]
  - Product use issue [Unknown]
